FAERS Safety Report 21209455 (Version 1)
Quarter: 2022Q3

REPORT INFORMATION
  Report Type: Report from Study
  Country: US (occurrence: US)
  Receive Date: 20220813
  Receipt Date: 20220813
  Transmission Date: 20221027
  Serious: Yes (Other)
  Sender: FDA-Public Use
  Company Number: US-HLS-202201354

PATIENT
  Sex: Female

DRUGS (1)
  1. CLOZAPINE [Suspect]
     Active Substance: CLOZAPINE
     Indication: Product used for unknown indication
     Dosage: 2MG
     Route: 048

REACTIONS (3)
  - COVID-19 [Unknown]
  - General physical condition abnormal [Unknown]
  - Urinary tract infection [Unknown]
